FAERS Safety Report 9093583 (Version 1)
Quarter: 2013Q1

REPORT INFORMATION
  Report Type: Spontaneous
  Country: US (occurrence: US)
  Receive Date: 20130201
  Receipt Date: 20130201
  Transmission Date: 20140127
  Serious: Yes (Hospitalization)
  Sender: FDA-Public Use
  Company Number: US-GILEAD-2012-0066382

PATIENT
  Sex: Male

DRUGS (4)
  1. LETAIRIS [Suspect]
     Indication: PORTOPULMONARY HYPERTENSION
     Dosage: 5 MG, QD
     Route: 048
     Dates: start: 20121124
  2. LETAIRIS [Suspect]
     Indication: PULMONARY ARTERIAL HYPERTENSION
  3. TYVASO [Concomitant]
  4. ADCIRCA [Concomitant]

REACTIONS (7)
  - Renal failure acute [Unknown]
  - Urinary tract infection [Unknown]
  - Gout [Unknown]
  - Unevaluable event [Unknown]
  - Upper respiratory tract infection [Unknown]
  - Local swelling [Unknown]
  - Paranasal sinus hypersecretion [Unknown]
